FAERS Safety Report 7008513-3 (Version None)
Quarter: 2010Q3

REPORT INFORMATION
  Report Type: 
  Country: None (occurrence: None)
  Receive Date: 20100922
  Receipt Date: 20100914
  Transmission Date: 20110219
  Serious: Yes (Other)
  Sender: FDA-Public Use
  Company Number: US-PFIZER INC-2010116400

PATIENT
  Sex: Male

DRUGS (5)
  1. XANAX [Suspect]
     Indication: ANXIETY
     Dosage: 2 MG, AS NEEDED
     Route: 048
  2. XANAX [Suspect]
     Indication: SCHIZOPHRENIA
  3. XANAX [Suspect]
     Indication: PANIC DISORDER
  4. PROZAC [Concomitant]
     Dosage: 40 MG, 1X/DAY
  5. CLONAZEPAM [Concomitant]
     Dosage: 6 MG, 1X/DAY

REACTIONS (4)
  - DRUG INEFFECTIVE [None]
  - EMOTIONAL DISTRESS [None]
  - INTENTIONAL DRUG MISUSE [None]
  - PANIC ATTACK [None]
